FAERS Safety Report 13870457 (Version 1)
Quarter: 2017Q3

REPORT INFORMATION
  Report Type: Report from Study
  Country: US (occurrence: US)
  Receive Date: 20170815
  Receipt Date: 20170815
  Transmission Date: 20171127
  Serious: Yes (Hospitalization, Other)
  Sender: FDA-Public Use
  Company Number: US-GILEAD-2017-0288273

PATIENT
  Age: 51 Year
  Sex: Male

DRUGS (1)
  1. LEDIPASVIR/SOFOSBUVIR [Suspect]
     Active Substance: LEDIPASVIR\SOFOSBUVIR
     Indication: CHRONIC HEPATITIS C
     Dosage: 1 DF, QD
     Route: 048
     Dates: start: 20170614

REACTIONS (7)
  - Hallucination, auditory [Unknown]
  - Head injury [Unknown]
  - Headache [Unknown]
  - Drug dose omission [Recovered/Resolved]
  - Chest pain [Unknown]
  - Anxiety [Unknown]
  - Seizure [Recovered/Resolved]
